FAERS Safety Report 24287145 (Version 1)
Quarter: 2024Q3

REPORT INFORMATION
  Report Type: Spontaneous
  Country: US (occurrence: None)
  Receive Date: 20240903
  Receipt Date: 20240903
  Transmission Date: 20241016
  Serious: Yes (Other)
  Sender: Public
  Company Number: None

PATIENT
  Age: 12 Year
  Sex: Male
  Weight: 36.29 kg

DRUGS (1)
  1. TAVNEOS [Suspect]
     Active Substance: AVACOPAN
     Indication: Anti-neutrophil cytoplasmic antibody positive vasculitis
     Dosage: FREQUENCY : TWICE A DAY;?
     Route: 048
     Dates: start: 20240509

REACTIONS (3)
  - Nausea [None]
  - Vomiting [None]
  - Hot flush [None]
